FAERS Safety Report 11288897 (Version 4)
Quarter: 2015Q4

REPORT INFORMATION
  Report Type: Report from Study
  Country: DE (occurrence: DE)
  Receive Date: 20150721
  Receipt Date: 20151224
  Transmission Date: 20160304
  Serious: Yes (Hospitalization, Other)
  Sender: FDA-Public Use
  Company Number: DE-GILEAD-2015-0162828

PATIENT
  Age: 30 Year
  Sex: Male
  Weight: 71 kg

DRUGS (20)
  1. GELOMYRTOL [Concomitant]
     Dosage: 300 MG, UNK
     Route: 065
     Dates: start: 20150414, end: 20150421
  2. AMOXI 1A PHARMA [Concomitant]
     Active Substance: AMOXICILLIN
     Dosage: 1000 MG, UNK
     Route: 065
     Dates: start: 20150414, end: 20150420
  3. TANTUM VERDE [Concomitant]
     Active Substance: BENZYDAMINE HYDROCHLORIDE
     Dosage: 60 MG, UNK
     Route: 065
     Dates: start: 20131212
  4. BERODUAL N [Concomitant]
     Active Substance: FENOTEROL HYDROBROMIDE\IPRATROPIUM BROMIDE
     Dosage: 4 DF, UNK
     Route: 065
     Dates: start: 20151005
  5. TRUVADA [Suspect]
     Active Substance: EMTRICITABINE\TENOFOVIR DISOPROXIL FUMARATE
     Indication: HIV INFECTION
     Dosage: 200 MG, QD
     Route: 048
     Dates: start: 20110715
  6. VIRAMUNE [Suspect]
     Active Substance: NEVIRAPINE
     Indication: HIV INFECTION
     Dosage: 400 MG, QD
     Route: 048
     Dates: start: 20110715
  7. METHYLENEDIOXYMETHAMPHETAMINE [Suspect]
     Active Substance: METHYLENEDIOXYMETHAMPHETAMINE
     Indication: SUBSTANCE ABUSE
     Dosage: 180 MG, TID
     Route: 065
     Dates: start: 20150704, end: 20150705
  8. CEFTRIAXON ACTAVIS [Concomitant]
     Dosage: 2 G, UNK
     Route: 065
     Dates: start: 20150713, end: 20150713
  9. DOXYCYCLIN                         /00055701/ [Concomitant]
     Active Substance: DOXYCYCLINE
     Dosage: 300 MG, UNK
     Route: 065
     Dates: start: 20151006, end: 20151012
  10. LEDIPASVIR/SOFOSBUVIR [Suspect]
     Active Substance: LEDIPASVIR\SOFOSBUVIR
     Indication: CHRONIC HEPATITIS C
     Dosage: 1 DF, QD
     Route: 048
     Dates: start: 20150302, end: 20150525
  11. IBUPROFEN. [Concomitant]
     Active Substance: IBUPROFEN
     Dosage: 800 MG, UNK
     Route: 065
     Dates: start: 20150928, end: 20151005
  12. CEFTRIAXON ACTAVIS [Concomitant]
     Dosage: 2 G, UNK
     Route: 065
     Dates: start: 20151008, end: 20151008
  13. ACICLOSTAD [Concomitant]
     Dosage: 400 MG, UNK
     Route: 065
     Dates: start: 20150507, end: 20150523
  14. CLARITHROMYCIN BASICS [Concomitant]
     Dosage: UNK
     Route: 065
     Dates: start: 20150710, end: 20150718
  15. DOXYCYCLIN                         /00055701/ [Concomitant]
     Active Substance: DOXYCYCLINE
     Dosage: 100 MG, UNK
     Route: 065
     Dates: start: 20150810, end: 20150811
  16. CYANOCOBALAMIN W/FOLIC ACID/IRON [Concomitant]
     Dosage: 900 MG, UNK
     Route: 065
     Dates: start: 20150928, end: 20151004
  17. DECODERM TRI                       /00497901/ [Concomitant]
     Dosage: 25 G, UNK
     Route: 065
     Dates: start: 20150305, end: 20150313
  18. AMOXI 1A PHARMA [Concomitant]
     Active Substance: AMOXICILLIN
     Dosage: 3000 MG, UNK
     Route: 065
     Dates: start: 20151005, end: 20151006
  19. IBUPROFEN. [Concomitant]
     Active Substance: IBUPROFEN
     Dosage: 400 MG, UNK
     Route: 065
     Dates: start: 20150414, end: 20150424
  20. AZITHROMYCIN [Concomitant]
     Active Substance: AZITHROMYCIN ANHYDROUS
     Dosage: 1500 MG, UNK
     Route: 065
     Dates: start: 20150811, end: 20150811

REACTIONS (6)
  - Myositis [Recovering/Resolving]
  - Alanine aminotransferase abnormal [Unknown]
  - Aspartate aminotransferase abnormal [Unknown]
  - Gamma-glutamyltransferase increased [Recovering/Resolving]
  - Visual impairment [Recovered/Resolved]
  - Blood creatine phosphokinase abnormal [Unknown]

NARRATIVE: CASE EVENT DATE: 20140702
